FAERS Safety Report 23555984 (Version 3)
Quarter: 2024Q4

REPORT INFORMATION
  Report Type: Spontaneous
  Country: JP (occurrence: JP)
  Receive Date: 20240222
  Receipt Date: 20241010
  Transmission Date: 20250114
  Serious: Yes (Hospitalization, Other)
  Sender: CSL BEHRING
  Company Number: JP-BEH-2024168780

PATIENT
  Age: 31 Year
  Sex: Male
  Weight: 50 kg

DRUGS (6)
  1. IDELVION [Suspect]
     Active Substance: COAGULATION FACTOR IX RECOMBINANT HUMAN
     Indication: Factor IX deficiency
     Dosage: 2000 INTERNATIONAL UNIT, Q5 DAYS
     Route: 065
     Dates: start: 202305, end: 202305
  2. IDELVION [Suspect]
     Active Substance: COAGULATION FACTOR IX RECOMBINANT HUMAN
     Indication: Factor IX deficiency
     Dosage: 2000 INTERNATIONAL UNIT, Q5 DAYS
     Route: 065
     Dates: start: 202305, end: 202305
  3. IDELVION [Suspect]
     Active Substance: COAGULATION FACTOR IX RECOMBINANT HUMAN
     Indication: Haemorrhage prophylaxis
     Dosage: 4000 IU, SINGLE
     Route: 065
     Dates: start: 202305, end: 202305
  4. IDELVION [Suspect]
     Active Substance: COAGULATION FACTOR IX RECOMBINANT HUMAN
     Indication: Haemorrhage prophylaxis
     Dosage: 4000 IU, SINGLE
     Route: 065
     Dates: start: 202305, end: 202305
  5. IDELVION [Suspect]
     Active Substance: COAGULATION FACTOR IX RECOMBINANT HUMAN
     Dosage: 2000 IU, SINGLE
     Route: 065
     Dates: start: 202305, end: 202305
  6. IDELVION [Suspect]
     Active Substance: COAGULATION FACTOR IX RECOMBINANT HUMAN
     Dosage: 2000 IU, SINGLE
     Route: 065
     Dates: start: 202305, end: 202305

REACTIONS (5)
  - Muscle haemorrhage [Recovered/Resolved]
  - Muscle haemorrhage [Recovered/Resolved]
  - Haematuria [Recovered/Resolved]
  - Muscle haemorrhage [Recovered/Resolved]
  - Off label use [Unknown]

NARRATIVE: CASE EVENT DATE: 20230501
